FAERS Safety Report 7525091-0 (Version None)
Quarter: 2011Q2

REPORT INFORMATION
  Report Type: 
  Country: None (occurrence: None)
  Receive Date: 20110606
  Receipt Date: 20110530
  Transmission Date: 20111010
  Serious: Yes (Other)
  Sender: FDA-Public Use
  Company Number: AR-AMGEN-ARGSP2011028366

PATIENT
  Sex: Female

DRUGS (3)
  1. MEPREDNISONE [Suspect]
     Dosage: UNK
  2. ENBREL [Suspect]
     Indication: PRODUCT USED FOR UNKNOWN INDICATION
     Dosage: UNK
     Dates: start: 20070801
  3. MEPREDNISONE [Suspect]

REACTIONS (4)
  - WITHDRAWAL SYNDROME [None]
  - NERVOUSNESS [None]
  - DYSPNOEA [None]
  - TREMOR [None]
